FAERS Safety Report 16947911 (Version 1)
Quarter: 2019Q4

REPORT INFORMATION
  Report Type: Report from Study
  Country: GR (occurrence: GR)
  Receive Date: 20191022
  Receipt Date: 20191022
  Transmission Date: 20200122
  Serious: Yes (Death, Hospitalization, Other)
  Sender: FDA-Public Use
  Company Number: GR-TAKEDA-2019TUS058960

PATIENT
  Age: 73 Year
  Sex: Male
  Weight: 64 kg

DRUGS (3)
  1. PREZOLON [Concomitant]
     Active Substance: PREDNISOLONE
     Indication: CONDITION AGGRAVATED
     Dosage: 20 MILLIGRAM
     Route: 048
     Dates: start: 20190524, end: 20190823
  2. ASACOL [Concomitant]
     Active Substance: MESALAMINE
     Indication: CONDITION AGGRAVATED
     Dosage: 800 MILLIGRAM, TID
     Route: 048
     Dates: start: 20190613, end: 20190823
  3. VEDOLIZUMAB [Suspect]
     Active Substance: VEDOLIZUMAB
     Indication: COLITIS ULCERATIVE
     Dosage: 300 MILLIGRAM
     Route: 042
     Dates: start: 20190614, end: 20190823

REACTIONS (4)
  - Multiple organ dysfunction syndrome [Fatal]
  - Femur fracture [Fatal]
  - Septic shock [Fatal]
  - Pneumonia [Fatal]

NARRATIVE: CASE EVENT DATE: 20190802
